FAERS Safety Report 7204155-5 (Version None)
Quarter: 2010Q4

REPORT INFORMATION
  Report Type: 
  Country: None (occurrence: None)
  Receive Date: 20101230
  Receipt Date: 20101227
  Transmission Date: 20110411
  Serious: Yes (Hospitalization)
  Sender: FDA-Public Use
  Company Number: JP-ROCHE-741836

PATIENT
  Sex: Female

DRUGS (8)
  1. HERCEPTIN [Suspect]
     Indication: BREAST CANCER METASTATIC
     Route: 041
     Dates: start: 20020101, end: 20100827
  2. AVASTIN [Suspect]
     Indication: BREAST CANCER METASTATIC
     Dosage: NOTE: IT WAS ONE ADMINISTERING WEEKLY HOLIDAY MEDICINE FOR TWO WEEKS.
     Route: 048
     Dates: start: 20100910, end: 20101108
  3. AVASTIN [Suspect]
     Dosage: NOTE: IT WAS ONE ADMINISTERING WEEKLY HOLIDAY MEDICINE FOR THREE WEEKS.
     Route: 048
     Dates: start: 20101122
  4. TYKERB [Concomitant]
     Dosage: NOTE: DOSAGE IS UNCERTAIN.
     Route: 048
     Dates: start: 20100910
  5. VIT B6 [Concomitant]
     Dosage: DOSE FORM: PERORAL AGENT, DOSAGE IS UNCERTAIN.
     Route: 048
  6. TAXOL [Concomitant]
     Indication: BREAST CANCER METASTATIC
     Dosage: DOSE FORM: INJECTION
     Route: 041
     Dates: start: 20060704, end: 20061114
  7. TAXOL [Concomitant]
     Dosage: DOSE FORM: INJECTION
     Route: 041
     Dates: start: 20080325, end: 20080819
  8. NAVELBINE [Concomitant]
     Indication: BREAST CANCER METASTATIC
     Route: 041
     Dates: start: 20100414, end: 20100828

REACTIONS (1)
  - PALMAR-PLANTAR ERYTHRODYSAESTHESIA SYNDROME [None]
